FAERS Safety Report 20165662 (Version 1)
Quarter: 2021Q4

REPORT INFORMATION
  Report Type: Spontaneous
  Country: US (occurrence: US)
  Receive Date: 20211209
  Receipt Date: 20211209
  Transmission Date: 20220303
  Serious: Yes (Other)
  Sender: FDA-Public Use
  Company Number: US-BAYER-2021A262131

PATIENT
  Age: 31 Year
  Sex: Female

DRUGS (4)
  1. ASPIRIN [Suspect]
     Active Substance: ASPIRIN
  2. HYDROXYCHLOROQUINE [Concomitant]
     Active Substance: HYDROXYCHLOROQUINE
  3. INFLIXIMAB [Concomitant]
     Active Substance: INFLIXIMAB
  4. USTEKINUMAB [Concomitant]
     Active Substance: USTEKINUMAB

REACTIONS (1)
  - Haematochezia [None]
